FAERS Safety Report 19814059 (Version 1)
Quarter: 2021Q3

REPORT INFORMATION
  Report Type: Spontaneous
  Country: IL (occurrence: IL)
  Receive Date: 20210910
  Receipt Date: 20210910
  Transmission Date: 20211014
  Serious: Yes (Other)
  Sender: FDA-Public Use
  Company Number: IL-LUPIN PHARMACEUTICALS INC.-2021-16952

PATIENT
  Age: 7 Year
  Sex: Female

DRUGS (5)
  1. DUPILUMAB [Concomitant]
     Active Substance: DUPILUMAB
     Indication: NEURODERMATITIS
     Dosage: 200 MILLIGRAM (8 MG/KG), LOADING DOSE
     Route: 058
  2. TRIAMCINOLONE [Suspect]
     Active Substance: TRIAMCINOLONE
     Indication: NEURODERMATITIS
     Dosage: 10 MILLIGRAM PER MILLILITRE (INJECTION)
     Route: 026
  3. DUPILUMAB [Concomitant]
     Active Substance: DUPILUMAB
     Dosage: 100 MILLIGRAM (8 MG/KG), EVERY 2 WEEKS
     Route: 058
  4. METHOTREXATE. [Concomitant]
     Active Substance: METHOTREXATE
     Indication: NEURODERMATITIS
     Dosage: UNK (7.5?10 MG/WEEK)
     Route: 048
  5. CYCLOSPORINE. [Concomitant]
     Active Substance: CYCLOSPORINE
     Indication: NEURODERMATITIS
     Dosage: 4 MILLIGRAM/KILOGRAM, QD
     Route: 065

REACTIONS (1)
  - Drug ineffective [Unknown]
